FAERS Safety Report 10070213 (Version 1)
Quarter: 2014Q2

REPORT INFORMATION
  Report Type: Spontaneous
  Country: US (occurrence: None)
  Receive Date: 20140409
  Receipt Date: 20140409
  Transmission Date: 20141212
  Serious: No
  Sender: FDA-Public Use
  Company Number: None

PATIENT
  Age: 53 Year
  Sex: Female

DRUGS (2)
  1. TECFIDERA [Suspect]
     Indication: MULTIPLE SCLEROSIS
     Dosage: 120MG/240 STARTER, BID FOR 7 DAYS, BY MOUTH
     Route: 048
     Dates: start: 20130905, end: 20141004
  2. TECFIDERA [Suspect]
     Indication: MULTIPLE SCLEROSIS
     Dosage: 240MG, TWICE A DAY, BY MOUTH
     Route: 048
     Dates: start: 20131228, end: 20140330

REACTIONS (4)
  - Tooth disorder [None]
  - Pain [None]
  - Endodontic procedure [None]
  - Therapy cessation [None]
